FAERS Safety Report 6902815-4 (Version None)
Quarter: 2010Q3

REPORT INFORMATION
  Report Type: 
  Country: None (occurrence: None)
  Receive Date: 20100803
  Receipt Date: 20080819
  Transmission Date: 20110219
  Serious: Yes (Other)
  Sender: FDA-Public Use
  Company Number: US-PFIZER INC-2008053642

PATIENT
  Sex: Female
  Weight: 70 kg

DRUGS (16)
  1. LYRICA [Suspect]
     Indication: FIBROMYALGIA
     Route: 048
     Dates: start: 20080319
  2. LYRICA [Suspect]
     Indication: TRIGEMINAL NEURALGIA
  3. LYRICA [Suspect]
     Indication: MYALGIA
  4. AMLODIPINE [Concomitant]
     Route: 048
  5. POTASSIUM [Concomitant]
     Route: 048
  6. PREMARIN [Concomitant]
     Route: 048
  7. HYDROCHLOROTHIAZIDE [Concomitant]
     Route: 048
  8. ACETYLSALICYLIC ACID SRT [Concomitant]
     Route: 048
  9. OS-CAL D [Concomitant]
     Route: 048
  10. LASIX [Concomitant]
     Route: 048
  11. MULTIPLE VITAMINS [Concomitant]
     Route: 048
  12. NITROGLYCERIN [Concomitant]
     Route: 060
  13. PRILOSEC [Concomitant]
     Route: 048
  14. ASTELIN [Concomitant]
     Route: 045
  15. NAPROXEN SODIUM [Concomitant]
     Dosage: AS NEEDED
     Route: 048
  16. FOSAMAX [Concomitant]
     Route: 048

REACTIONS (4)
  - APHASIA [None]
  - DRY MOUTH [None]
  - MEMORY IMPAIRMENT [None]
  - VISION BLURRED [None]
